FAERS Safety Report 12076167 (Version 1)
Quarter: 2016Q1

REPORT INFORMATION
  Report Type: Spontaneous
  Country: US (occurrence: US)
  Receive Date: 20160215
  Receipt Date: 20160215
  Transmission Date: 20160526
  Serious: Yes (Other)
  Sender: FDA-Public Use
  Company Number: US-BEH-2016058567

PATIENT
  Sex: Male
  Weight: 107 kg

DRUGS (28)
  1. ZEMAIRA [Suspect]
     Active Substance: .ALPHA.1-PROTEINASE INHIBITOR HUMAN
     Indication: ALPHA-1 ANTI-TRYPSIN DEFICIENCY
     Route: 042
  2. EFFEXOR XR [Concomitant]
     Active Substance: VENLAFAXINE HYDROCHLORIDE
  3. DIPHENHYDRAMINE. [Concomitant]
     Active Substance: DIPHENHYDRAMINE
  4. EPIPEN [Concomitant]
     Active Substance: EPINEPHRINE
  5. LEVAQUIN [Concomitant]
     Active Substance: LEVOFLOXACIN
  6. SYNTHROID [Concomitant]
     Active Substance: LEVOTHYROXINE SODIUM
  7. MAXZIDE [Concomitant]
     Active Substance: HYDROCHLOROTHIAZIDE\TRIAMTERENE
  8. NYSTOP [Concomitant]
     Active Substance: NYSTATIN
  9. ANDROGEL [Concomitant]
     Active Substance: TESTOSTERONE
  10. CITALOPRAM [Concomitant]
     Active Substance: CITALOPRAM HYDROBROMIDE
  11. ZEMAIRA [Suspect]
     Active Substance: .ALPHA.1-PROTEINASE INHIBITOR HUMAN
     Route: 042
  12. HYDROCORTISONE-PRAMOXINE [Concomitant]
  13. CLONAZEPAM. [Concomitant]
     Active Substance: CLONAZEPAM
  14. LISINOPRIL. [Concomitant]
     Active Substance: LISINOPRIL
  15. SODIUM CHLORIDE. [Concomitant]
     Active Substance: SODIUM CHLORIDE
  16. PREDNISONE. [Concomitant]
     Active Substance: PREDNISONE
  17. IBUPROFEN. [Concomitant]
     Active Substance: IBUPROFEN
  18. PROVENTIL [Concomitant]
     Active Substance: ALBUTEROL
  19. ZOCOR [Concomitant]
     Active Substance: SIMVASTATIN
  20. SODIUM CHLORIDE. [Concomitant]
     Active Substance: SODIUM CHLORIDE
  21. TRAMADOL. [Concomitant]
     Active Substance: TRAMADOL
  22. L-M-X [Concomitant]
  23. MELATONIN [Concomitant]
     Active Substance: MELATONIN
  24. VITAMIN D [Concomitant]
     Active Substance: CHOLECALCIFEROL
  25. NAPROXEN. [Concomitant]
     Active Substance: NAPROXEN
  26. OMEGA 3 FISH OIL [Concomitant]
     Active Substance: FISH OIL\OMEGA-3 FATTY ACIDS
  27. GLUCOSAMINE-CHONDR [Concomitant]
  28. CENTRUM SILVER [Concomitant]
     Active Substance: MINERALS\VITAMINS

REACTIONS (1)
  - Parkinson^s disease [Unknown]
